FAERS Safety Report 8530726-X (Version None)
Quarter: 2012Q3

REPORT INFORMATION
  Report Type: 
  Country: None (occurrence: None)
  Receive Date: 20120723
  Receipt Date: 20120717
  Transmission Date: 20120928
  Serious: Yes (Other)
  Sender: FDA-Public Use
  Company Number: AU-ABBOTT-12P-008-0949950-00

PATIENT
  Sex: Female

DRUGS (1)
  1. HUMIRA [Suspect]
     Indication: RHEUMATOID ARTHRITIS
     Dates: start: 20111201

REACTIONS (3)
  - SYSTEMIC LUPUS ERYTHEMATOSUS [None]
  - BLOOD IRON INCREASED [None]
  - RHEUMATOID ARTHRITIS [None]
